FAERS Safety Report 8246760-3 (Version None)
Quarter: 2012Q1

REPORT INFORMATION
  Report Type: 
  Country: None (occurrence: None)
  Receive Date: 20120320
  Receipt Date: 20120307
  Transmission Date: 20120608
  Serious: Yes (Other)
  Sender: FDA-Public Use
  Company Number: 2012MZ000124

PATIENT
  Age: 32 Year
  Sex: Female

DRUGS (8)
  1. CITALOPRAM HYDROBROMIDE [Concomitant]
  2. PROPRANOLOL [Concomitant]
  3. ACETAMINOPHEN AND CODEINE PHOSPHATE [Concomitant]
  4. CYCLIZINE [Concomitant]
  5. GABAPENTIN [Concomitant]
  6. BOTULINUM TOXIN TYPE A [Suspect]
     Indication: TORTICOLLIS
     Dosage: X1;IM ; 130 IU;X1;IM
     Route: 030
     Dates: start: 20111027, end: 20111027
  7. BOTULINUM TOXIN TYPE A [Suspect]
     Indication: TORTICOLLIS
     Dosage: X1;IM ; 130 IU;X1;IM
     Route: 030
     Dates: start: 20100625, end: 20100625
  8. DIAZEPAM [Concomitant]

REACTIONS (2)
  - MATERNAL EXPOSURE DURING PREGNANCY [None]
  - ABORTION SPONTANEOUS [None]
